FAERS Safety Report 13705590 (Version 1)
Quarter: 2017Q2

REPORT INFORMATION
  Report Type: Spontaneous
  Country: AT (occurrence: AT)
  Receive Date: 20170630
  Receipt Date: 20170630
  Transmission Date: 20170830
  Serious: Yes (Death, Hospitalization)
  Sender: FDA-Public Use
  Company Number: AT-STRIDES ARCOLAB LIMITED-2017SP010104

PATIENT

DRUGS (2)
  1. MYCOPHENOLATE MOFETIL. [Suspect]
     Active Substance: MYCOPHENOLATE MOFETIL
     Indication: LUNG TRANSPLANT
     Dosage: UNK
     Route: 065
  2. CICLOSPORIN [Suspect]
     Active Substance: CYCLOSPORINE
     Indication: LUNG TRANSPLANT
     Dosage: UNK
     Route: 065

REACTIONS (1)
  - Diverticular perforation [Fatal]
